FAERS Safety Report 5312321-9 (Version None)
Quarter: 2007Q2

REPORT INFORMATION
  Report Type: 
  Country: None (occurrence: None)
  Receive Date: 20070430
  Receipt Date: 20070417
  Transmission Date: 20071010
  Serious: Yes (Other)
  Sender: FDA-Public Use
  Company Number: 2007CG00390

PATIENT
  Age: 467 Month
  Sex: Male
  Weight: 61 kg

DRUGS (4)
  1. NEXIUM [Suspect]
     Indication: GASTROOESOPHAGEAL REFLUX DISEASE
     Route: 048
     Dates: start: 20070228, end: 20070302
  2. NEXIUM [Suspect]
     Indication: DYSPHONIA
     Route: 048
     Dates: start: 20070228, end: 20070302
  3. OMEPRAZOLE [Suspect]
     Indication: GASTROOESOPHAGEAL REFLUX DISEASE
     Route: 048
     Dates: start: 20070303, end: 20070303
  4. OMEPRAZOLE [Suspect]
     Indication: DYSPHONIA
     Route: 048
     Dates: start: 20070303, end: 20070303

REACTIONS (7)
  - ABDOMINAL PAIN UPPER [None]
  - ASTHENIA [None]
  - CHEILITIS [None]
  - DIZZINESS [None]
  - GINGIVITIS [None]
  - NAUSEA [None]
  - STOMATITIS [None]
